FAERS Safety Report 14344644 (Version 1)
Quarter: 2018Q1

REPORT INFORMATION
  Report Type: Spontaneous
  Country: US (occurrence: US)
  Receive Date: 20180103
  Receipt Date: 20180103
  Transmission Date: 20180509
  Serious: No
  Sender: FDA-Public Use
  Company Number: US-ELI_LILLY_AND_COMPANY-US201712008387

PATIENT
  Sex: Male

DRUGS (3)
  1. HUMALOG [Suspect]
     Active Substance: INSULIN LISPRO
     Indication: PRODUCT USED FOR UNKNOWN INDICATION
     Dosage: 8 U, UNKNOWN
     Route: 058
     Dates: start: 2016
  2. HUMALOG [Suspect]
     Active Substance: INSULIN LISPRO
     Dosage: 8 U, UNK
     Route: 058
  3. LANTUS [Suspect]
     Active Substance: INSULIN GLARGINE
     Indication: PRODUCT USED FOR UNKNOWN INDICATION
     Dosage: UNK, UNKNOWN
     Route: 065

REACTIONS (4)
  - Impaired healing [Unknown]
  - Blood glucose fluctuation [Unknown]
  - Blood glucose increased [Unknown]
  - Incorrect dose administered [Unknown]
